FAERS Safety Report 6842746-1 (Version None)
Quarter: 2010Q3

REPORT INFORMATION
  Report Type: 
  Country: None (occurrence: None)
  Receive Date: 20100714
  Receipt Date: 20070925
  Transmission Date: 20110219
  Serious: No
  Sender: FDA-Public Use
  Company Number: US-PFIZER INC-2007064739

PATIENT
  Sex: Male
  Weight: 118.18 kg

DRUGS (12)
  1. CHANTIX [Suspect]
     Indication: SMOKING CESSATION THERAPY
     Dates: start: 20070401, end: 20070701
  2. OXYCONTIN [Concomitant]
  3. VICODIN [Concomitant]
  4. SOMA [Concomitant]
  5. PLAVIX [Concomitant]
  6. LIPITOR [Concomitant]
  7. XANAX [Concomitant]
  8. ZOLPIDEM TARTRATE [Concomitant]
  9. VITAMIN B [Concomitant]
  10. PROMETHAZINE [Concomitant]
  11. ADALAT [Concomitant]
  12. PREVACID [Concomitant]

REACTIONS (1)
  - DRUG INEFFECTIVE [None]
